FAERS Safety Report 5714175-5 (Version None)
Quarter: 2008Q2

REPORT INFORMATION
  Report Type: 
  Country: None (occurrence: None)
  Receive Date: 20080423
  Receipt Date: 20070823
  Transmission Date: 20081010
  Serious: No
  Sender: FDA-Public Use
  Company Number: US-KINGPHARMUSA00001-K200701085

PATIENT

DRUGS (2)
  1. SKELAXIN [Suspect]
     Indication: MUSCLE SPASMS
     Dosage: 1 TABLET, PRN
     Dates: start: 20050101, end: 20060101
  2. SKELAXIN [Suspect]
     Dosage: 1/2 TABLET, PRN
     Dates: start: 20060101

REACTIONS (3)
  - BURNING SENSATION [None]
  - DRUG INEFFECTIVE [None]
  - PAROSMIA [None]
